FAERS Safety Report 7454238-X (Version None)
Quarter: 2011Q2

REPORT INFORMATION
  Report Type: 
  Country: None (occurrence: None)
  Receive Date: 20110503
  Receipt Date: 20110421
  Transmission Date: 20111010
  Serious: Yes (Other)
  Sender: FDA-Public Use
  Company Number: US-US-EMD SERONO, INC.-234970J09USA

PATIENT
  Sex: Female
  Weight: 61 kg

DRUGS (10)
  1. VITAMIN B COMPLEX CAP [Concomitant]
     Route: 065
  2. FIBERCON [Concomitant]
     Route: 065
  3. ELAVIL [Concomitant]
     Indication: INSOMNIA
     Route: 065
  4. MULTI-VITAMINS [Concomitant]
     Route: 065
  5. REBIF [Suspect]
     Indication: MULTIPLE SCLEROSIS
     Route: 058
     Dates: start: 20090901, end: 20100105
  6. GLUCOPHAGE [Concomitant]
     Indication: DIABETES MELLITUS
     Route: 065
     Dates: start: 20070101
  7. ZANAFLEX [Concomitant]
     Indication: MUSCLE SPASMS
     Route: 065
  8. LOPRESSOR [Concomitant]
     Indication: HEART RATE IRREGULAR
     Route: 065
     Dates: start: 20070101
  9. REBIF [Suspect]
     Route: 058
     Dates: start: 20100105
  10. VITAMIN D [Concomitant]
     Route: 065

REACTIONS (2)
  - DIABETIC RETINOPATHY [None]
  - DRUG INTERACTION [None]
